FAERS Safety Report 9997311 (Version 1)
Quarter: 2014Q1

REPORT INFORMATION
  Report Type: Spontaneous
  Country: US (occurrence: None)
  Receive Date: 20140304
  Receipt Date: 20140304
  Transmission Date: 20141002
  Serious: Yes (Other)
  Sender: FDA-Public Use
  Company Number: RB-58726-2013

PATIENT
  Sex: Male

DRUGS (2)
  1. BUPRENORPHINE [Suspect]
     Indication: DRUG DEPENDENCE
     Dosage: PARENTS CONTRIBUTED TO EXPOSURE; VARIOUS DOSES;USUALLY ABOUT 6MG DAILY;DAD ROUTE :UNKNOWN TRPL
     Dates: start: 201210, end: 201307
  2. BUPRENORPHINE W/NALOXONE [Suspect]
     Indication: DRUG DEPENDENCE
     Dosage: PARENTS CONTRIBUTED TO EXPOSURE; VARIOUS DOSES;USUALLY ABOUT 6MG DAILY;DAD ROUTE :UNKNOWN TRPL
     Dates: start: 201210

REACTIONS (4)
  - Foetal exposure during pregnancy [None]
  - Sneezing [None]
  - Drug withdrawal syndrome neonatal [None]
  - Exposure during breast feeding [None]
